FAERS Safety Report 6283887-X (Version None)
Quarter: 2009Q3

REPORT INFORMATION
  Report Type: 
  Country: None (occurrence: None)
  Receive Date: 20090723
  Receipt Date: 20090723
  Transmission Date: 20100115
  Serious: Yes (Hospitalization)
  Sender: FDA-Public Use
  Company Number: None

PATIENT
  Age: 66 Year
  Sex: Male

DRUGS (2)
  1. METHADONE HCL [Suspect]
     Indication: NON-SMALL CELL LUNG CANCER
     Dosage: 50 MG QID PO
     Route: 048
     Dates: start: 20090112
  2. OXYCODONE HCL [Suspect]
     Indication: CANCER PAIN
     Dosage: 40 MG TID PO
     Route: 048
     Dates: start: 20090112

REACTIONS (2)
  - CONSTIPATION [None]
  - ILEUS [None]
